FAERS Safety Report 7471773-9 (Version None)
Quarter: 2011Q2

REPORT INFORMATION
  Report Type: 
  Country: None (occurrence: None)
  Receive Date: 20110511
  Receipt Date: 20100421
  Transmission Date: 20111010
  Serious: No
  Sender: FDA-Public Use
  Company Number: A0856529A

PATIENT
  Age: 63 Year
  Sex: Female

DRUGS (7)
  1. TYKERB [Suspect]
     Indication: ADRENAL CARCINOMA
     Dosage: 2TAB PER DAY
     Route: 065
     Dates: start: 20100325, end: 20100426
  2. VITAMINS [Concomitant]
  3. HERCEPTIN [Suspect]
     Dates: start: 20100325
  4. SODIUM PHENYLBUTYRATE [Concomitant]
  5. NEXAVAR [Suspect]
     Dates: start: 20100325
  6. NEXAVAR [Concomitant]
  7. HERCEPTIN [Concomitant]

REACTIONS (9)
  - ASTHENIA [None]
  - FATIGUE [None]
  - RASH [None]
  - RASH PAPULAR [None]
  - PAIN OF SKIN [None]
  - TINNITUS [None]
  - VENTRICULAR EXTRASYSTOLES [None]
  - PRURITUS [None]
  - HYPERSENSITIVITY [None]
